FAERS Safety Report 21853981 (Version 8)
Quarter: 2025Q1

REPORT INFORMATION
  Report Type: Spontaneous
  Country: US (occurrence: US)
  Receive Date: 20230112
  Receipt Date: 20250226
  Transmission Date: 20250409
  Serious: No
  Sender: PFIZER
  Company Number: US-PFIZER INC-2021077908

PATIENT
  Age: 62 Year
  Sex: Female

DRUGS (14)
  1. XELJANZ XR [Suspect]
     Active Substance: TOFACITINIB CITRATE
     Indication: Arthritis
     Dosage: 11 MG, 1X/DAY
     Route: 048
  2. XELJANZ XR [Suspect]
     Active Substance: TOFACITINIB CITRATE
     Indication: Rheumatoid arthritis
  3. XELJANZ XR [Suspect]
     Active Substance: TOFACITINIB CITRATE
     Indication: Psoriasis
  4. ALBUTEROL [Concomitant]
     Active Substance: ALBUTEROL
  5. ALCOHOL [Concomitant]
     Active Substance: ALCOHOL
  6. AMLODIPINE [Concomitant]
     Active Substance: AMLODIPINE BESYLATE
  7. ASPIRIN [Concomitant]
     Active Substance: ASPIRIN
  8. ATORVASTATIN [Concomitant]
     Active Substance: ATORVASTATIN
  9. BUDESONIDE [Concomitant]
     Active Substance: BUDESONIDE
  10. CALCIUM [Concomitant]
     Active Substance: CALCIUM
  11. DICLOFENAC [Concomitant]
     Active Substance: DICLOFENAC
  12. FLUOCINONIDE [Concomitant]
     Active Substance: FLUOCINONIDE
  13. HYDROCHLOROTHIAZIDE [Concomitant]
     Active Substance: HYDROCHLOROTHIAZIDE
  14. HYDROCODONE [Concomitant]
     Active Substance: HYDROCODONE

REACTIONS (5)
  - Condition aggravated [Unknown]
  - Pain [Unknown]
  - Procedural pain [Unknown]
  - Nasopharyngitis [Unknown]
  - Sinusitis [Unknown]
